FAERS Safety Report 6742763-6 (Version None)
Quarter: 2010Q2

REPORT INFORMATION
  Report Type: 
  Country: None (occurrence: None)
  Receive Date: 20100526
  Receipt Date: 20100420
  Transmission Date: 20101027
  Serious: No
  Sender: FDA-Public Use
  Company Number: US-ABBOTT-10P-163-0636188-00

PATIENT
  Sex: Male

DRUGS (17)
  1. ZEMPLAR [Suspect]
     Indication: NEPHROPATHY
     Route: 048
     Dates: start: 20090612
  2. ZEMPLAR [Suspect]
     Indication: HYPOPARATHYROIDISM SECONDARY
     Dosage: 5 DAYS WEEKLY, MONDAY TO FRIDAY
     Route: 048
  3. ZEMPLAR [Suspect]
     Dosage: 7 DAYS A WEEK
     Route: 048
     Dates: end: 20090810
  4. ZEMPLAR [Suspect]
     Dosage: 5 DAYS WEEKLY, MONDAY TO FRIDAY
     Route: 048
     Dates: start: 20090810
  5. FLOMAX [Concomitant]
     Indication: DRUG USE FOR UNKNOWN INDICATION
     Route: 048
  6. FINASTERIDE [Concomitant]
     Indication: DRUG USE FOR UNKNOWN INDICATION
     Dosage: DAILY
     Route: 048
  7. OMEPRAZOLE [Concomitant]
     Indication: DRUG USE FOR UNKNOWN INDICATION
     Dosage: DAILY
     Route: 048
  8. LEVOTHYROXINE SODIUM [Concomitant]
     Indication: DRUG USE FOR UNKNOWN INDICATION
     Dosage: DAILY
     Route: 048
  9. SIMVASTATIN [Concomitant]
     Indication: DRUG USE FOR UNKNOWN INDICATION
     Dosage: DAILY
     Route: 048
  10. LISINOPRIL [Concomitant]
     Indication: DRUG USE FOR UNKNOWN INDICATION
     Dosage: DAILY
     Route: 048
  11. ALLOPURINOL [Concomitant]
     Indication: DRUG USE FOR UNKNOWN INDICATION
     Dosage: DAILY
     Route: 048
  12. CLONAZEPAM [Concomitant]
     Indication: DRUG USE FOR UNKNOWN INDICATION
     Dosage: DAILY
     Route: 048
  13. METAMUCIL-2 [Concomitant]
     Indication: DRUG USE FOR UNKNOWN INDICATION
     Dosage: 2 TABLESPOONS-DAILY IN AM
     Route: 048
  14. CALCIUM CARBONATE [Concomitant]
     Indication: DRUG USE FOR UNKNOWN INDICATION
     Dosage: DAILY
     Route: 048
  15. MULTI-VITAMIN [Concomitant]
     Indication: DRUG USE FOR UNKNOWN INDICATION
     Dosage: FOUR TIMES WEEKLY
     Route: 048
  16. SODIUM BICARBONATE [Concomitant]
     Indication: DRUG USE FOR UNKNOWN INDICATION
     Dosage: TWICE DAILY
     Route: 048
  17. CALCIUM ACETATE [Concomitant]
     Indication: DRUG USE FOR UNKNOWN INDICATION
     Dosage: TWICE DAILY
     Route: 048

REACTIONS (2)
  - ABDOMINAL PAIN UPPER [None]
  - HEADACHE [None]
